FAERS Safety Report 10183667 (Version 2)
Quarter: 2014Q2

REPORT INFORMATION
  Report Type: Spontaneous
  Country: US (occurrence: US)
  Receive Date: 20140520
  Receipt Date: 20140520
  Transmission Date: 20141212
  Serious: Yes (Hospitalization, Other)
  Sender: FDA-Public Use
  Company Number: US-CELGENEUS-163-POMAL-14042672

PATIENT
  Age: 73 Year
  Sex: Male
  Weight: 80.8 kg

DRUGS (13)
  1. POMALYST [Suspect]
     Indication: PLASMA CELL MYELOMA
     Dosage: 4 MILLIGRAM
     Route: 048
     Dates: start: 20130630, end: 20131025
  2. POMALYST [Suspect]
     Dosage: 4 MILLIGRAM
     Route: 048
     Dates: start: 20140304, end: 20140325
  3. POMALYST [Suspect]
     Dosage: 4 MILLIGRAM
     Route: 048
     Dates: start: 201403, end: 20140403
  4. POMALYST [Suspect]
     Dosage: 4 MILLIGRAM
     Route: 048
     Dates: start: 201404
  5. POMALYST [Suspect]
     Dosage: 6 MILLIGRAM
     Route: 048
     Dates: start: 201404
  6. CORDARONE [Concomitant]
     Indication: PRODUCT USED FOR UNKNOWN INDICATION
     Dosage: 200 MILLIGRAM
     Route: 048
  7. VITAMIN D [Concomitant]
     Indication: PRODUCT USED FOR UNKNOWN INDICATION
     Dosage: 1000 UNIT
     Route: 048
  8. CLARITIN [Concomitant]
     Indication: PRODUCT USED FOR UNKNOWN INDICATION
     Route: 048
  9. MOBIC [Concomitant]
     Indication: PRODUCT USED FOR UNKNOWN INDICATION
     Dosage: 1 - 2MG
     Route: 048
  10. LOPRESSOR [Concomitant]
     Indication: PRODUCT USED FOR UNKNOWN INDICATION
     Dosage: 25 MILLIGRAM
     Route: 048
  11. PRILOSEC [Concomitant]
     Indication: PRODUCT USED FOR UNKNOWN INDICATION
     Dosage: 40 MILLIGRAM
     Route: 048
  12. XARELTO [Concomitant]
     Indication: PRODUCT USED FOR UNKNOWN INDICATION
     Dosage: 20 MILLIGRAM
     Route: 048
  13. FLOMAX [Concomitant]
     Indication: PRODUCT USED FOR UNKNOWN INDICATION
     Dosage: .4 MILLIGRAM
     Route: 048

REACTIONS (3)
  - Syncope [Unknown]
  - Cardiac failure [Unknown]
  - Dizziness [Recovered/Resolved]
